FAERS Safety Report 7407252-4 (Version None)
Quarter: 2011Q2

REPORT INFORMATION
  Report Type: 
  Country: None (occurrence: None)
  Receive Date: 20110411
  Receipt Date: 20110329
  Transmission Date: 20111010
  Serious: Yes (Other)
  Sender: FDA-Public Use
  Company Number: PHEH2006US15191

PATIENT
  Sex: Male

DRUGS (15)
  1. PREDNISONE [Concomitant]
  2. VITAMIN B-12 [Concomitant]
  3. PROSCAR [Concomitant]
  4. VITAMIN B6 [Concomitant]
  5. FOLIC ACID [Concomitant]
  6. VELCADE [Concomitant]
  7. DEXAMETHASONE [Concomitant]
  8. ZOMETA [Suspect]
     Dosage: UNK
     Dates: end: 20040101
  9. IRON [Concomitant]
  10. BIAXIN [Concomitant]
  11. THALIDOMIDE [Concomitant]
  12. AREDIA [Suspect]
     Dosage: UNK
     Dates: start: 19980610
  13. NORVASC [Concomitant]
  14. ALKERAN [Concomitant]
  15. ASPIRIN [Concomitant]

REACTIONS (39)
  - AORTIC VALVE CALCIFICATION [None]
  - PERICARDIAL EFFUSION [None]
  - COMPRESSION FRACTURE [None]
  - LIMB CRUSHING INJURY [None]
  - ANXIETY [None]
  - TOOTH FRACTURE [None]
  - DYSPLASTIC NAEVUS SYNDROME [None]
  - INGUINAL HERNIA [None]
  - MITRAL VALVE INCOMPETENCE [None]
  - NEOPLASM MALIGNANT [None]
  - INSOMNIA [None]
  - FISTULA [None]
  - HIATUS HERNIA [None]
  - OSTEONECROSIS OF JAW [None]
  - OSTEITIS [None]
  - BASAL CELL CARCINOMA [None]
  - OESOPHAGEAL DISORDER [None]
  - SUBRETINAL FIBROSIS [None]
  - SINUS DISORDER [None]
  - ANGIOMYOLIPOMA [None]
  - SYNOVIAL DISORDER [None]
  - GENERAL PHYSICAL HEALTH DETERIORATION [None]
  - PSORIASIS [None]
  - SUPRAVENTRICULAR EXTRASYSTOLES [None]
  - VENTRICULAR DYSFUNCTION [None]
  - ATELECTASIS [None]
  - DECREASED INTEREST [None]
  - ACTINIC KERATOSIS [None]
  - TACHYCARDIA [None]
  - VISION BLURRED [None]
  - PAIN [None]
  - PROSTATIC CALCIFICATION [None]
  - VENTRICULAR EXTRASYSTOLES [None]
  - SEBORRHOEIC KERATOSIS [None]
  - ANAEMIA [None]
  - COLONIC POLYP [None]
  - SPONDYLOLISTHESIS [None]
  - INTERVERTEBRAL DISC DEGENERATION [None]
  - MACULAR DEGENERATION [None]
